FAERS Safety Report 23035440 (Version 2)
Quarter: 2023Q4

REPORT INFORMATION
  Report Type: Report from Study
  Country: US (occurrence: US)
  Receive Date: 20231006
  Receipt Date: 20231123
  Transmission Date: 20240109
  Serious: Yes (Hospitalization)
  Sender: FDA-Public Use
  Company Number: US-ABBVIE-5437388

PATIENT
  Age: 65 Year
  Sex: Female
  Weight: 71.667 kg

DRUGS (11)
  1. SKYRIZI [Suspect]
     Active Substance: RISANKIZUMAB-RZAA
     Indication: Crohn^s disease
     Route: 058
     Dates: start: 20221103
  2. Covid vaccine [Concomitant]
     Indication: COVID-19 immunisation
     Dates: start: 20230925
  3. METHADONE [Concomitant]
     Active Substance: METHADONE HYDROCHLORIDE
     Indication: Pain
  4. DOXYCYCLINE [Concomitant]
     Active Substance: DOXYCYCLINE
     Indication: Arthropathy
  5. MIRALAX [Concomitant]
     Active Substance: POLYETHYLENE GLYCOL 3350
     Indication: Crohn^s disease
  6. SPIRONOLACTONE [Concomitant]
     Active Substance: SPIRONOLACTONE
     Indication: Alopecia
  7. ACIPHEX [Concomitant]
     Active Substance: RABEPRAZOLE SODIUM
     Indication: Gastrooesophageal reflux disease
  8. ALPRAZOLAM [Concomitant]
     Active Substance: ALPRAZOLAM
     Indication: Anxiety
  9. DESVENLAFAXINE [Concomitant]
     Active Substance: DESVENLAFAXINE
     Indication: Depression
  10. CRESTOR [Concomitant]
     Active Substance: ROSUVASTATIN CALCIUM
     Indication: Blood cholesterol increased
  11. LEVOTHYROXINE [Concomitant]
     Active Substance: LEVOTHYROXINE
     Indication: Hypothyroidism

REACTIONS (6)
  - Colitis [Not Recovered/Not Resolved]
  - Illness [Unknown]
  - Crohn^s disease [Recovering/Resolving]
  - Blood potassium decreased [Recovered/Resolved]
  - Pain [Recovering/Resolving]
  - Inflammatory bowel disease [Unknown]

NARRATIVE: CASE EVENT DATE: 20230926
